FAERS Safety Report 10031841 (Version 7)
Quarter: 2015Q2

REPORT INFORMATION
  Report Type: Spontaneous
  Country: US (occurrence: US)
  Receive Date: 20140324
  Receipt Date: 20150630
  Transmission Date: 20150821
  Serious: Yes (Hospitalization, Other)
  Sender: FDA-Public Use
  Company Number: US-009507513-1203USA03977

PATIENT
  Sex: Female
  Weight: 54.8 kg

DRUGS (7)
  1. ALENDRONATE SODIUM. [Suspect]
     Active Substance: ALENDRONATE SODIUM
     Indication: OSTEOPOROSIS
     Dosage: 70 MG, UNK
     Route: 048
     Dates: start: 20080223, end: 20090914
  2. FOSAMAX [Suspect]
     Active Substance: ALENDRONATE SODIUM
     Indication: OSTEOPENIA
  3. CALCIUM (UNSPECIFIED) [Concomitant]
     Active Substance: CALCIUM
     Indication: OSTEOPENIA
  4. FOSAMAX [Suspect]
     Active Substance: ALENDRONATE SODIUM
     Indication: OSTEOPOROSIS
     Dosage: 10 MG, UNK
     Route: 048
     Dates: start: 2000
  5. HORMONES (UNSPECIFIED) [Concomitant]
     Active Substance: UNSPECIFIED INGREDIENT
     Dosage: UNK
     Dates: start: 1970, end: 2000
  6. FOSAMAX [Suspect]
     Active Substance: ALENDRONATE SODIUM
     Indication: OSTEOPOROSIS
     Dosage: UNK UNK,
     Route: 048
     Dates: start: 200101, end: 20090914
  7. FOSAMAX [Suspect]
     Active Substance: ALENDRONATE SODIUM
     Indication: OSTEOPENIA
     Dosage: 70 MG, QW
     Route: 048
     Dates: end: 200911

REACTIONS (36)
  - Large intestine polyp [Unknown]
  - Depression [Unknown]
  - Back pain [Not Recovered/Not Resolved]
  - Gastrooesophageal reflux disease [Unknown]
  - Caecal lesion excision [Unknown]
  - Caecal lesion excision [Unknown]
  - Cardiac murmur [Unknown]
  - Skin disorder [Unknown]
  - Inflammatory bowel disease [Unknown]
  - Anaesthetic complication [Unknown]
  - Colectomy [Unknown]
  - Biopsy bone abnormal [Unknown]
  - Fibrosis [Unknown]
  - Inflammation [Unknown]
  - Carotid bruit [Unknown]
  - Adverse event [Unknown]
  - Arthritis [Unknown]
  - Arthralgia [Not Recovered/Not Resolved]
  - Femur fracture [Unknown]
  - Hyperlipidaemia [Unknown]
  - Hypothyroidism [Unknown]
  - Ulcer [Unknown]
  - Intramedullary rod insertion [Unknown]
  - Low turnover osteopathy [Unknown]
  - Intestinal resection [Unknown]
  - Reflux laryngitis [Unknown]
  - Oedema peripheral [Unknown]
  - Muscle spasms [Unknown]
  - Biopsy bone [Unknown]
  - Femur fracture [Unknown]
  - Crohn^s disease [Unknown]
  - Colitis ulcerative [Not Recovered/Not Resolved]
  - Gastrointestinal disorder [Unknown]
  - Cholecystectomy [Unknown]
  - Intervertebral disc degeneration [Unknown]
  - Rheumatoid arthritis [Unknown]

NARRATIVE: CASE EVENT DATE: 2000
